FAERS Safety Report 24118829 (Version 1)
Quarter: 2024Q3

REPORT INFORMATION
  Report Type: Spontaneous
  Country: JP (occurrence: JP)
  Receive Date: 20240722
  Receipt Date: 20240722
  Transmission Date: 20241017
  Serious: Yes (Hospitalization)
  Sender: CHEPLAPHARM
  Company Number: JP-CLGN-JP-CLI-2024-010417

PATIENT

DRUGS (1)
  1. HYDROXYUREA [Suspect]
     Active Substance: HYDROXYUREA
     Dosage: AFTER BREAKFAST, QOD
     Route: 048

REACTIONS (2)
  - Hospitalisation [Unknown]
  - Inappropriate schedule of product administration [Unknown]
